FAERS Safety Report 12252913 (Version 1)
Quarter: 2016Q2

REPORT INFORMATION
  Report Type: Spontaneous
  Country: US (occurrence: US)
  Receive Date: 20160411
  Receipt Date: 20160411
  Transmission Date: 20160815
  Serious: Yes (Other)
  Sender: FDA-Public Use
  Company Number: US-PFIZER INC-2016199035

PATIENT
  Age: 19 Year
  Sex: Female
  Weight: 45 kg

DRUGS (4)
  1. LYRICA [Suspect]
     Active Substance: PREGABALIN
     Indication: FIBROMYALGIA
     Dosage: 300 MG, DAILY
     Route: 048
     Dates: start: 20150723
  2. LYRICA [Suspect]
     Active Substance: PREGABALIN
     Indication: ANXIETY
     Dosage: 150 MG, 1X/DAY AT NIGHT
     Route: 048
  3. LEXAPRO [Concomitant]
     Active Substance: ESCITALOPRAM OXALATE
     Indication: DEPRESSION
     Dosage: 20 MG, AT NIGHT
  4. KLONOPIN [Concomitant]
     Active Substance: CLONAZEPAM
     Indication: ANXIETY
     Dosage: 1.5, EVERY NIGHT

REACTIONS (10)
  - Activities of daily living impaired [Unknown]
  - Intentional product use issue [Unknown]
  - Neoplasm malignant [Unknown]
  - Condition aggravated [Unknown]
  - Drug effect incomplete [Unknown]
  - Motor dysfunction [Unknown]
  - Bipolar disorder [Unknown]
  - Major depression [Unknown]
  - Malignant melanoma [Unknown]
  - Anxiety disorder [Unknown]

NARRATIVE: CASE EVENT DATE: 201511
